FAERS Safety Report 9206966 (Version 1)
Quarter: 2013Q2

REPORT INFORMATION
  Report Type: Spontaneous
  Country: US (occurrence: US)
  Receive Date: 20130403
  Receipt Date: 20130403
  Transmission Date: 20140414
  Serious: Yes (Death, Other)
  Sender: FDA-Public Use
  Company Number: US-UCBSA-081735

PATIENT
  Sex: Male

DRUGS (2)
  1. LORTAB [Suspect]
  2. OXYCODONE [Concomitant]

REACTIONS (3)
  - Completed suicide [Fatal]
  - Intervertebral disc degeneration [Unknown]
  - Pain [Unknown]
